FAERS Safety Report 20543732 (Version 1)
Quarter: 2022Q1

REPORT INFORMATION
  Report Type: Spontaneous
  Country: GB (occurrence: GB)
  Receive Date: 20220303
  Receipt Date: 20220303
  Transmission Date: 20220423
  Serious: Yes (Disabling, Other)
  Sender: FDA-Public Use
  Company Number: GB-TEVA-2022-GB-2013555

PATIENT
  Sex: Female

DRUGS (2)
  1. PROGESTERONE [Suspect]
     Active Substance: PROGESTERONE
     Indication: Assisted reproductive technology
     Dosage: 2 DOSAGE FORMS DAILY; 1 DOSAGE FORMS,2 IN 1 D
     Route: 065
     Dates: start: 20220209, end: 20220218
  2. Pregnacare conception [Concomitant]
     Indication: Vitamin supplementation
     Route: 048

REACTIONS (7)
  - Hypoxia [Recovered/Resolved]
  - Fatigue [Recovered/Resolved]
  - Dyspnoea [Recovered/Resolved]
  - Muscle spasms [Recovered/Resolved]
  - Dizziness [Recovered/Resolved]
  - Confusional state [Recovered/Resolved]
  - Heart rate abnormal [Recovered/Resolved]

NARRATIVE: CASE EVENT DATE: 20220211
